FAERS Safety Report 18503989 (Version 3)
Quarter: 2021Q3

REPORT INFORMATION
  Report Type: Report from Study
  Country: US (occurrence: US)
  Receive Date: 20201113
  Receipt Date: 20210722
  Transmission Date: 20211014
  Serious: Yes (Hospitalization, Other)
  Sender: FDA-Public Use
  Company Number: US-TAKEDA-2020TUS047210

PATIENT
  Age: 52 Year
  Sex: Male

DRUGS (14)
  1. FIDAXOMICIN [Concomitant]
     Active Substance: FIDAXOMICIN
     Indication: CULTURE STOOL POSITIVE
     Dosage: 200 MILLIGRAM, BID
     Route: 048
     Dates: start: 20210202, end: 20210211
  2. PANCRELIPASE. [Concomitant]
     Active Substance: PANCRELIPASE
     Indication: STEATORRHOEA
     Dosage: 999999.9 INTERNATIONAL UNIT, TID
     Route: 048
     Dates: start: 20210214
  3. METHYLPREDNISOLONE. [Concomitant]
     Active Substance: METHYLPREDNISOLONE
     Indication: PRODUCT USED FOR UNKNOWN INDICATION
     Dosage: 99.99 MILLIGRAM, QID
     Route: 042
     Dates: start: 20210117, end: 20210123
  4. TEDUGLUTIDE [Suspect]
     Active Substance: TEDUGLUTIDE
     Indication: SHORT-BOWEL SYNDROME
     Dosage: 5.0 MILLIGRAM (TED DAILY DOSES 999.000 MG/KG, TED DOSES PER WEEK 7)
     Route: 065
     Dates: start: 20170615, end: 20170713
  5. ZOFRAN [Concomitant]
     Active Substance: ONDANSETRON HYDROCHLORIDE
     Indication: NAUSEA
     Dosage: 4 MILLIGRAM
     Route: 042
     Dates: start: 20200910, end: 20201015
  6. VANCOMYCIN [Concomitant]
     Active Substance: VANCOMYCIN
     Indication: CULTURE STOOL POSITIVE
     Dosage: 125 MILLIGRAM, QID
     Route: 048
     Dates: start: 20210126, end: 20210206
  7. METHYLPREDNISOLONE. [Concomitant]
     Active Substance: METHYLPREDNISOLONE
     Dosage: 99.99 MILLIGRAM, BID
     Route: 042
     Dates: start: 20210117, end: 20210123
  8. TEDUGLUTIDE [Suspect]
     Active Substance: TEDUGLUTIDE
     Indication: SHORT-BOWEL SYNDROME
     Dosage: 5.0 MILLIGRAM (TED DAILY DOSES 999.000 MG/KG, TED DOSES PER WEEK 7)
     Route: 065
     Dates: start: 20170615, end: 20170713
  9. TEDUGLUTIDE [Suspect]
     Active Substance: TEDUGLUTIDE
     Indication: SHORT-BOWEL SYNDROME
     Dosage: 5.0 MILLIGRAM (TED DAILY DOSES 999.000 MG/KG, TED DOSES PER WEEK 7)
     Route: 065
     Dates: start: 20170615, end: 20170713
  10. TEDUGLUTIDE [Suspect]
     Active Substance: TEDUGLUTIDE
     Indication: SHORT-BOWEL SYNDROME
     Dosage: 5.0 MILLIGRAM (TED DAILY DOSES 999.000 MG/KG, TED DOSES PER WEEK 7)
     Route: 065
     Dates: start: 20170615, end: 20170713
  11. SCOPOLAMINE [HYOSCINE] [Concomitant]
     Active Substance: SCOPOLAMINE
     Indication: NAUSEA
     Dosage: 1.50 MILLIGRAM
     Route: 062
     Dates: start: 20201016
  12. ZOFRAN [Concomitant]
     Active Substance: ONDANSETRON HYDROCHLORIDE
     Dosage: 4 MILLIGRAM
     Route: 060
     Dates: start: 20201016
  13. INSULIN [Concomitant]
     Active Substance: INSULIN NOS
     Indication: HYPERGLYCAEMIA
     Dosage: 9999.99 UNITS
     Route: 058
     Dates: start: 20200908
  14. LOVENOX [LEVOFLOXACIN] [Concomitant]
     Active Substance: LEVOFLOXACIN
     Indication: VENOUS THROMBOSIS
     Route: 065

REACTIONS (7)
  - Intra-abdominal fluid collection [Recovered/Resolved]
  - Cytomegalovirus viraemia [Recovered/Resolved]
  - Hyperglycaemia [Not Recovered/Not Resolved]
  - Nausea [Not Recovered/Not Resolved]
  - Abdominal wall disorder [Recovered/Resolved]
  - Seroma [Recovered/Resolved]
  - Venous thrombosis [Not Recovered/Not Resolved]

NARRATIVE: CASE EVENT DATE: 20200908
